FAERS Safety Report 12294717 (Version 9)
Quarter: 2018Q2

REPORT INFORMATION
  Report Type: Report from Study
  Country: BR (occurrence: BR)
  Receive Date: 20160422
  Receipt Date: 20180522
  Transmission Date: 20180711
  Serious: Yes (Life-Threatening, Other)
  Sender: FDA-Public Use
  Company Number: PHHY2014BR156876

PATIENT
  Sex: Female
  Weight: 64 kg

DRUGS (11)
  1. MORPHINE [Concomitant]
     Active Substance: MORPHINE
     Indication: PAIN
     Dosage: UNK UNK, Q6H (EVERY SIX HOURS)
     Route: 065
  2. OMEPRAZOLE. [Concomitant]
     Active Substance: OMEPRAZOLE
     Indication: NAUSEA
     Dosage: 4 DF, QD
     Route: 065
  3. PARACETAMOL [Concomitant]
     Active Substance: ACETAMINOPHEN
     Indication: GASTROINTESTINAL DISORDER
     Dosage: 35 DRP, UNK
     Route: 065
  4. MORPHINE [Concomitant]
     Active Substance: MORPHINE
     Indication: GASTROINTESTINAL DISORDER
  5. SANDOSTATIN LAR DEPOT [Suspect]
     Active Substance: OCTREOTIDE ACETATE
     Indication: NEUROENDOCRINE TUMOUR
  6. OMEPRAZOLE. [Concomitant]
     Active Substance: OMEPRAZOLE
     Indication: PAIN
  7. SANDOSTATIN LAR DEPOT [Suspect]
     Active Substance: OCTREOTIDE ACETATE
     Indication: NEUROENDOCRINE CARCINOMA METASTATIC
     Dosage: 30 MG, QMO (EVERY 28 DAYS)
     Route: 030
     Dates: start: 201309, end: 201408
  8. SANDOSTATIN LAR DEPOT [Suspect]
     Active Substance: OCTREOTIDE ACETATE
     Indication: HEPATIC NEOPLASM
     Dosage: 30 MG, QMO (EVERY 28 DAYS)
     Route: 030
     Dates: start: 201411, end: 20151121
  9. ZOMETA [Suspect]
     Active Substance: ZOLEDRONIC ACID
     Indication: BONE PAIN
     Dosage: 1 DF, QMO
     Route: 042
  10. CALCEE D [Concomitant]
     Indication: BONE DISORDER
     Dosage: 2 DF, QD
     Route: 048
  11. ENSURE [Concomitant]
     Active Substance: AMINO ACIDS\DEXTROSE\ELECTROLYTES NOS\SOYBEAN OIL\VITAMINS
     Indication: PRODUCT USED FOR UNKNOWN INDICATION
     Route: 065

REACTIONS (43)
  - Fatigue [Not Recovered/Not Resolved]
  - Dyschezia [Unknown]
  - Nervousness [Unknown]
  - Liver disorder [Unknown]
  - Abdominal discomfort [Not Recovered/Not Resolved]
  - Gait disturbance [Recovering/Resolving]
  - Malignant neoplasm progression [Unknown]
  - Limb discomfort [Unknown]
  - Abdominal distension [Unknown]
  - Apparent death [Unknown]
  - Dysentery [Unknown]
  - Hepatic pain [Unknown]
  - Weight decreased [Unknown]
  - Vomiting [Recovered/Resolved]
  - Pain [Unknown]
  - Abdominal pain [Unknown]
  - Dyspnoea [Unknown]
  - Product use in unapproved indication [Unknown]
  - Fat tissue increased [Unknown]
  - Feeding disorder [Unknown]
  - Back pain [Unknown]
  - Coccydynia [Unknown]
  - Swelling [Unknown]
  - Peripheral swelling [Unknown]
  - Malaise [Unknown]
  - Heart rate irregular [Unknown]
  - Bladder dysfunction [Unknown]
  - Urinary retention [Unknown]
  - Abdominal pain upper [Unknown]
  - Pain in extremity [Not Recovered/Not Resolved]
  - Functional gastrointestinal disorder [Unknown]
  - Depressed mood [Unknown]
  - Gastrointestinal disorder [Unknown]
  - Diarrhoea [Unknown]
  - Discomfort [Unknown]
  - Neuroendocrine tumour [Unknown]
  - Metastasis [Unknown]
  - Somnolence [Not Recovered/Not Resolved]
  - Fluid retention [Unknown]
  - Renal disorder [Unknown]
  - Dizziness [Recovering/Resolving]
  - Constipation [Unknown]
  - Therapy non-responder [Recovering/Resolving]

NARRATIVE: CASE EVENT DATE: 2013
